FAERS Safety Report 8086611-3 (Version None)
Quarter: 2012Q1

REPORT INFORMATION
  Report Type: 
  Country: None (occurrence: None)
  Receive Date: 20120128
  Receipt Date: 20110517
  Transmission Date: 20120608
  Serious: No
  Sender: FDA-Public Use
  Company Number: US-ABBOTT-11P-163-0726285-00

PATIENT
  Age: 49 Year
  Sex: Female

DRUGS (14)
  1. PREDNISONE TAB [Concomitant]
     Indication: RHEUMATOID ARTHRITIS
  2. PREMARIN [Concomitant]
     Indication: HORMONE REPLACEMENT THERAPY
  3. SKELAXIN [Concomitant]
     Indication: MUSCLE RELAXANT THERAPY
  4. NORVASC [Concomitant]
     Indication: HYPERTENSION
  5. MULTI-VITAMINS [Concomitant]
     Indication: PRODUCT USED FOR UNKNOWN INDICATION
  6. FLAXSEED OIL [Concomitant]
     Indication: SUPPLEMENTATION THERAPY
  7. TRAMADOL HCL [Concomitant]
     Indication: PRODUCT USED FOR UNKNOWN INDICATION
     Dosage: 37.5/325MG AS NEEDED
  8. HUMIRA [Suspect]
     Indication: RHEUMATOID ARTHRITIS
     Dates: start: 20110418
  9. NEXIUM [Concomitant]
     Indication: GASTRIC DISORDER
  10. RESTORIL [Concomitant]
     Indication: INSOMNIA
  11. LORTAB [Concomitant]
     Indication: PAIN
  12. ZOLOFT [Concomitant]
     Indication: DEPRESSION
  13. CALCIUM 600 PLUS VITAMIN D [Concomitant]
     Indication: MINERAL SUPPLEMENTATION
  14. MICARDIS HCT [Concomitant]
     Indication: HYPERTENSION
     Dosage: 80/25MG DAILY

REACTIONS (2)
  - FATIGUE [None]
  - HEADACHE [None]
